FAERS Safety Report 8931341 (Version 2)
Quarter: 2013Q1

REPORT INFORMATION
  Report Type: Spontaneous
  Country: US (occurrence: US)
  Receive Date: 20121128
  Receipt Date: 20130114
  Transmission Date: 20140127
  Serious: No
  Sender: FDA-Public Use
  Company Number: US-PFIZER INC-2012297806

PATIENT
  Age: 63 Year
  Sex: Female

DRUGS (2)
  1. XANAX [Suspect]
     Indication: ANXIETY
     Dosage: 0.5 MG, 1X/DAY
     Route: 048
  2. XANAX XR [Suspect]
     Indication: ANXIETY
     Dosage: UNK,1XDAY

REACTIONS (1)
  - Drug effect decreased [Unknown]
